FAERS Safety Report 8472707-0 (Version None)
Quarter: 2012Q2

REPORT INFORMATION
  Report Type: 
  Country: None (occurrence: None)
  Receive Date: 20120627
  Receipt Date: 20120613
  Transmission Date: 20120825
  Serious: Yes (Hospitalization, Other)
  Sender: FDA-Public Use
  Company Number: DE-FRI-1000031595

PATIENT
  Sex: Female

DRUGS (4)
  1. CITALOPRAM HYDROBROMIDE [Suspect]
     Dosage: 20 MG
     Route: 048
     Dates: end: 20120102
  2. HYDROCHLOROTHIAZIDE [Suspect]
     Dosage: 25 MG
     Route: 048
     Dates: end: 20120102
  3. OPIPRAMOL [Suspect]
     Dosage: 50 MG
     Route: 048
     Dates: end: 20120117
  4. RAMIPRIL [Suspect]
     Dosage: 10 MG
     Route: 048

REACTIONS (3)
  - HYPERTENSIVE CRISIS [None]
  - POTENTIATING DRUG INTERACTION [None]
  - HYPONATRAEMIA [None]
